FAERS Safety Report 8058425-1 (Version None)
Quarter: 2012Q1

REPORT INFORMATION
  Report Type: 
  Country: None (occurrence: None)
  Receive Date: 20120120
  Receipt Date: 20120116
  Transmission Date: 20120608
  Serious: Yes (Hospitalization)
  Sender: FDA-Public Use
  Company Number: JP-PFIZER INC-2012011497

PATIENT
  Age: 73 Year
  Sex: Male
  Weight: 66 kg

DRUGS (18)
  1. PRAVASTATIN SODIUM [Concomitant]
     Dosage: UNK
  2. INDAPAMIDE [Concomitant]
  3. MAGMITT [Concomitant]
  4. LORCAM [Concomitant]
     Dosage: UNK
  5. MECOBALAMIN [Concomitant]
     Dosage: UNK
  6. TEPRENONE [Concomitant]
     Dosage: UNK
  7. NEUROTROPIN [Concomitant]
     Dosage: UNK
  8. DIOVAN [Concomitant]
     Dosage: UNK
  9. NIKORANMART [Concomitant]
     Dosage: UNK
  10. ZOLPIDEM [Concomitant]
     Dosage: UNK
  11. PRORENAL [Concomitant]
     Dosage: UNK
  12. LANSOPRAZOLE [Concomitant]
     Dosage: UNK
  13. ISOSORBIDE MONONITRATE [Concomitant]
     Dosage: UNK
  14. LYRICA [Suspect]
     Indication: NEURALGIA
     Dosage: 75 MG/DAY
     Route: 048
     Dates: start: 20111018, end: 20111117
  15. DILTIAZEM HCL [Concomitant]
     Dosage: UNK
  16. AMARYL [Concomitant]
     Dosage: UNK
  17. ASPIRIN [Concomitant]
     Dosage: UNK
  18. METFORMIN HCL [Concomitant]
     Dosage: UNK

REACTIONS (4)
  - HEPATIC FUNCTION ABNORMAL [None]
  - AMYLASE INCREASED [None]
  - RENAL FAILURE ACUTE [None]
  - ABNORMAL SENSATION IN EYE [None]
